FAERS Safety Report 14816553 (Version 4)
Quarter: 2019Q3

REPORT INFORMATION
  Report Type: Report from Study
  Country: US (occurrence: US)
  Receive Date: 20180426
  Receipt Date: 20190705
  Transmission Date: 20191004
  Serious: Yes (Hospitalization)
  Sender: FDA-Public Use
  Company Number: US-ASTRAZENECA-2018SE54494

PATIENT
  Age: 24866 Day
  Sex: Female

DRUGS (10)
  1. ADVIL [Concomitant]
     Active Substance: IBUPROFEN
     Indication: PAIN
     Dosage: 200.0MG AS REQUIRED
     Route: 048
     Dates: start: 20071111
  2. IMODIUM [Concomitant]
     Active Substance: LOPERAMIDE HYDROCHLORIDE
     Indication: DIARRHOEA
     Dosage: 2.0MG AS REQUIRED
     Route: 048
     Dates: start: 201304
  3. ASPIRIN. [Concomitant]
     Active Substance: ASPIRIN
     Indication: GENERAL PHYSICAL CONDITION
     Route: 048
     Dates: start: 200701
  4. FEMARA [Concomitant]
     Active Substance: LETROZOLE
     Dosage: DAILY
     Dates: start: 20180313
  5. LISINOPRIL HCTZ [Concomitant]
     Active Substance: HYDROCHLOROTHIAZIDE\LISINOPRIL
     Indication: HYPERTENSION
     Route: 048
     Dates: start: 201709
  6. VITAMIN E/C [Concomitant]
     Indication: GENERAL PHYSICAL CONDITION
     Route: 048
     Dates: start: 200701
  7. CITRACAL D3 [Concomitant]
     Active Substance: CALCIUM CITRATE\CHOLECALCIFEROL
     Indication: GENERAL PHYSICAL CONDITION
     Route: 048
     Dates: start: 200701
  8. AZD2281 [Suspect]
     Active Substance: OLAPARIB
     Indication: OVARIAN CANCER
     Route: 048
     Dates: start: 20171017, end: 20171212
  9. TYLENOL [Concomitant]
     Active Substance: ACETAMINOPHEN
     Indication: PAIN
     Dosage: 325.0MG AS REQUIRED
     Route: 048
     Dates: start: 20071111
  10. MUCINEX [Concomitant]
     Active Substance: GUAIFENESIN
     Indication: COUGH
     Dosage: 600.0MG AS REQUIRED
     Route: 048
     Dates: start: 20171212

REACTIONS (1)
  - Pneumonitis [Not Recovered/Not Resolved]

NARRATIVE: CASE EVENT DATE: 20180329
